FAERS Safety Report 6169114-2 (Version None)
Quarter: 2009Q2

REPORT INFORMATION
  Report Type: 
  Country: None (occurrence: None)
  Receive Date: 20090424
  Receipt Date: 20081208
  Transmission Date: 20091009
  Serious: No
  Sender: FDA-Public Use
  Company Number: ALL1-2008-03502

PATIENT
  Age: 49 Year
  Sex: Male
  Weight: 68 kg

DRUGS (1)
  1. VYVANSE [Suspect]
     Indication: ATTENTION DEFICIT/HYPERACTIVITY DISORDER
     Dosage: 30 MG, 1X/DAY:QD, ORAL
     Route: 048
     Dates: start: 20081205

REACTIONS (8)
  - ASTHENIA [None]
  - CHILLS [None]
  - DRY MOUTH [None]
  - HEADACHE [None]
  - MYALGIA [None]
  - NASAL DRYNESS [None]
  - NAUSEA [None]
  - VOMITING [None]
